FAERS Safety Report 8838440 (Version 1)
Quarter: 2012Q4

REPORT INFORMATION
  Report Type: 
  Country: US (occurrence: US)
  Receive Date: 20121012
  Receipt Date: 20121012
  Transmission Date: 20130627
  Serious: Yes (Hospitalization, Other)
  Sender: FDA-Public Use
  Company Number: CHPA2012US021205

PATIENT
  Age: 44 Year
  Sex: Female

DRUGS (1)
  1. EXCEDRIN MIGRAINE [Suspect]
     Indication: MIGRAINE
     Dosage: 2 DF, PRN
     Route: 048
     Dates: end: 201112

REACTIONS (2)
  - Convulsion [Recovered/Resolved]
  - Hypertension [Recovered/Resolved]
